FAERS Safety Report 11807976 (Version 1)
Quarter: 2015Q4

REPORT INFORMATION
  Report Type: Spontaneous
  Country: US (occurrence: US)
  Receive Date: 20151207
  Receipt Date: 20151207
  Transmission Date: 20160305
  Serious: Yes (Other)
  Sender: FDA-Public Use
  Company Number: US-BAYER-2015-476483

PATIENT
  Age: 48 Year
  Sex: Female

DRUGS (5)
  1. MOXIFLOXACIN ORAL [Suspect]
     Active Substance: MOXIFLOXACIN
  2. VANCOMYCIN [Concomitant]
     Active Substance: VANCOMYCIN
  3. QUETIAPINE [Concomitant]
     Active Substance: QUETIAPINE
     Route: 048
  4. PIPERACILLIN SODIUM W/TAZOBACTAM [Concomitant]
     Active Substance: PIPERACILLIN SODIUM\TAZOBACTAM SODIUM
  5. LISINOPRIL. [Concomitant]
     Active Substance: LISINOPRIL

REACTIONS (1)
  - Torsade de pointes [Recovered/Resolved]
